FAERS Safety Report 4370379-8 (Version None)
Quarter: 2004Q2

REPORT INFORMATION
  Report Type: 
  Country: None (occurrence: None)
  Receive Date: 20040603
  Receipt Date: 20040224
  Transmission Date: 20050107
  Serious: Yes (Disabling)
  Sender: FDA-Public Use
  Company Number: US-BRISTOL-MYERS SQUIBB COMPANY-12515524

PATIENT
  Age: 71 Year
  Sex: Female

DRUGS (7)
  1. ABILIFY [Suspect]
     Indication: DELUSIONAL DISORDER, UNSPECIFIED TYPE
     Dosage: 15 MG/DAY FROM 18-MAR-03 TO 27-MAY-03, THEN DECREASED TO 10 MG/DAY. TAKEN AT BEDTIME.
     Route: 048
     Dates: start: 20021210, end: 20031216
  2. PROZAC [Concomitant]
     Dosage: 90 MG TABLETS, TWO TABLETS/WEEK
     Route: 048
  3. WELLBUTRIN SR [Concomitant]
  4. VITAMIN E [Concomitant]
  5. FOSAMAX [Concomitant]
     Dates: end: 20030901
  6. METAMUCIL-2 [Concomitant]
  7. NASONEX [Concomitant]
     Dosage: TAKEN IN FALL AND SPRING

REACTIONS (2)
  - AKATHISIA [None]
  - TARDIVE DYSKINESIA [None]
